FAERS Safety Report 7542457-3 (Version None)
Quarter: 2011Q2

REPORT INFORMATION
  Report Type: 
  Country: None (occurrence: None)
  Receive Date: 20110613
  Receipt Date: 20110607
  Transmission Date: 20111010
  Serious: Yes (Hospitalization, Other)
  Sender: FDA-Public Use
  Company Number: CA-ABBOTT-11P-028-0706153-00

PATIENT
  Sex: Female
  Weight: 42.676 kg

DRUGS (3)
  1. CORTISONE ACETATE [Concomitant]
     Indication: CROHN'S DISEASE
     Route: 048
     Dates: start: 20081201, end: 20090601
  2. PURINETHOL [Concomitant]
     Indication: CROHN'S DISEASE
     Route: 048
     Dates: start: 20081201, end: 20090601
  3. HUMIRA [Suspect]
     Indication: CROHN'S DISEASE
     Route: 058
     Dates: start: 20081201, end: 20100801

REACTIONS (4)
  - ANAL FISTULA [None]
  - INFECTION [None]
  - CROHN'S DISEASE [None]
  - ANAL ABSCESS [None]
